FAERS Safety Report 14814022 (Version 2)
Quarter: 2018Q2

REPORT INFORMATION
  Report Type: Report from Study
  Country: DE (occurrence: DE)
  Receive Date: 20180426
  Receipt Date: 20180530
  Transmission Date: 20180711
  Serious: Yes (Hospitalization, Other)
  Sender: FDA-Public Use
  Company Number: DE-ACCORD-066235

PATIENT
  Age: 56 Year
  Sex: Male
  Weight: 73 kg

DRUGS (2)
  1. ABRAXANE [Suspect]
     Active Substance: PACLITAXEL
     Indication: NON-SMALL CELL LUNG CANCER
     Dosage: 100 MILLIGRAM/SQ. METER?124
     Route: 041
     Dates: start: 20170804, end: 20170915
  2. CARBOPLATIN. [Suspect]
     Active Substance: CARBOPLATIN
     Indication: NON-SMALL CELL LUNG CANCER
     Dosage: 6 MG/ML/MIN
     Route: 041
     Dates: start: 20170602, end: 20170908

REACTIONS (8)
  - Anaemia [Not Recovered/Not Resolved]
  - Salivary hypersecretion [Unknown]
  - Polyneuropathy [Unknown]
  - Skin irritation [Unknown]
  - Nausea [Unknown]
  - Nail discomfort [Unknown]
  - Faecaloma [Recovered/Resolved]
  - Headache [Unknown]

NARRATIVE: CASE EVENT DATE: 20170602
